FAERS Safety Report 7541622-9 (Version None)
Quarter: 2011Q2

REPORT INFORMATION
  Report Type: 
  Country: None (occurrence: None)
  Receive Date: 20110613
  Receipt Date: 20110601
  Transmission Date: 20111010
  Serious: Yes (Other)
  Sender: FDA-Public Use
  Company Number: AU-JNJFOC-20110206457

PATIENT
  Sex: Female
  Weight: 83 kg

DRUGS (4)
  1. STELARA [Suspect]
     Route: 058
     Dates: start: 20101217
  2. PREDNISOLONE [Concomitant]
  3. METHOTREXATE [Concomitant]
  4. STELARA [Suspect]
     Indication: PSORIASIS
     Route: 058
     Dates: start: 20100528

REACTIONS (3)
  - SUNBURN [None]
  - PSORIASIS [None]
  - PHOTOSENSITIVITY REACTION [None]
